FAERS Safety Report 4384777-X (Version None)
Quarter: 2004Q2

REPORT INFORMATION
  Report Type: 
  Country: None (occurrence: None)
  Receive Date: 20040621
  Receipt Date: 20040603
  Transmission Date: 20050107
  Serious: Yes (Hospitalization)
  Sender: FDA-Public Use
  Company Number: 2004-0006928

PATIENT
  Age: 53 Year
  Sex: Male
  Weight: 73 kg

DRUGS (10)
  1. VIREAD [Suspect]
     Indication: HIV INFECTION
     Dosage: 300 MG, 1 IN 1 D, ORAL
     Route: 048
     Dates: start: 20030402, end: 20040316
  2. ENFUVIRTIDE (ENFUVIRTIDE) (90 MILLIGRAM, INJECTION) [Suspect]
     Indication: HIV INFECTION
     Dosage: 90 MG, 2 IN 1 D, SUBCUTANEOUS
     Route: 058
     Dates: start: 20030402, end: 20040316
  3. TIPRANAVIR (TIPRANAVIR) (500 MILLIGRAM, TABLET) [Suspect]
     Indication: HIV INFECTION
     Dosage: 500 MG, 2 IN 1, ORAL
     Route: 048
     Dates: start: 20030416
  4. MCP DROPS (METOCLOPRAMIDE) [Concomitant]
  5. ALLOPURINOL [Concomitant]
  6. KALETRA (KALETRA) (TABLET) [Concomitant]
  7. RITONAVIR (RITONAVIR) [Concomitant]
  8. EPIVIR [Concomitant]
  9. CAPTOPRIL [Concomitant]
  10. VOLTAREN [Concomitant]

REACTIONS (21)
  - ANOREXIA [None]
  - DIABETES MELLITUS INADEQUATE CONTROL [None]
  - DIARRHOEA [None]
  - GENERAL PHYSICAL HEALTH DETERIORATION [None]
  - GOUT [None]
  - HAEMODIALYSIS [None]
  - HAEMOGLOBIN DECREASED [None]
  - HEPATIC STEATOSIS [None]
  - HEPATOCELLULAR DAMAGE [None]
  - HEPATOSPLENOMEGALY [None]
  - INFLUENZA [None]
  - LYMPHADENOPATHY [None]
  - NEPHRITIS INTERSTITIAL [None]
  - ONYCHOMYCOSIS [None]
  - POST PROCEDURAL HAEMORRHAGE [None]
  - PYELONEPHRITIS [None]
  - RENAL FAILURE ACUTE [None]
  - RENAL HAEMATOMA [None]
  - RENAL TUBULAR DISORDER [None]
  - URINARY TRACT INFECTION [None]
  - VARICOSE VEIN [None]
